FAERS Safety Report 4625259-7 (Version None)
Quarter: 2005Q2

REPORT INFORMATION
  Report Type: 
  Country: None (occurrence: None)
  Receive Date: 20050401
  Receipt Date: 20050317
  Transmission Date: 20051028
  Serious: Yes (Other)
  Sender: FDA-Public Use
  Company Number: JP-ROCHE-399718

PATIENT
  Age: 3 Year
  Sex: Female

DRUGS (1)
  1. TAMIFLU [Suspect]
     Route: 048
     Dates: start: 20050311, end: 20050313

REACTIONS (1)
  - STEVENS-JOHNSON SYNDROME [None]
